FAERS Safety Report 18770374 (Version 1)
Quarter: 2021Q1

REPORT INFORMATION
  Report Type: Spontaneous
  Country: US (occurrence: US)
  Receive Date: 20210121
  Receipt Date: 20210121
  Transmission Date: 20210419
  Serious: Yes (Life-Threatening, Hospitalization, Other)
  Sender: FDA-Public Use
  Company Number: US-BAYER-2021-028984

PATIENT
  Age: 54 Year
  Sex: Female

DRUGS (1)
  1. MAGNESIUM HYDROXIDE. [Suspect]
     Active Substance: MAGNESIUM HYDROXIDE

REACTIONS (9)
  - Intestinal perforation [None]
  - Pancreatitis [None]
  - Acute kidney injury [None]
  - Oliguria [None]
  - Hypermagnesaemia [None]
  - Lactic acidosis [None]
  - Overdose [None]
  - Colitis ischaemic [None]
  - Microangiopathic haemolytic anaemia [None]
